FAERS Safety Report 19067820 (Version 1)
Quarter: 2021Q1

REPORT INFORMATION
  Report Type: Spontaneous
  Country: CN (occurrence: CN)
  Receive Date: 20210329
  Receipt Date: 20210329
  Transmission Date: 20210420
  Serious: Yes (Other)
  Sender: FDA-Public Use
  Company Number: CN-PFIZER INC-2021307697

PATIENT
  Age: 30 Year
  Sex: Female
  Weight: 47 kg

DRUGS (2)
  1. MIFEPRISTONE [Concomitant]
     Active Substance: MIFEPRISTONE
     Indication: THERAPEUTIC PROCEDURE
     Dosage: 50 MG, 1X/DAY
     Route: 048
     Dates: start: 20210219, end: 20210225
  2. METHOTREXATE. [Suspect]
     Active Substance: METHOTREXATE
     Indication: THERAPEUTIC PROCEDURE
     Dosage: 75 MG, 1X/DAY
     Route: 030
     Dates: start: 20210223, end: 20210223

REACTIONS (5)
  - Dizziness [Recovering/Resolving]
  - Asthenia [Recovering/Resolving]
  - Vomiting [Recovering/Resolving]
  - Drug-induced liver injury [Recovering/Resolving]
  - Nausea [Recovering/Resolving]

NARRATIVE: CASE EVENT DATE: 20210225
